FAERS Safety Report 4618351-4 (Version None)
Quarter: 2005Q1

REPORT INFORMATION
  Report Type: 
  Country: None (occurrence: None)
  Receive Date: 20050324
  Receipt Date: 20050307
  Transmission Date: 20050727
  Serious: Yes (Disabling, Other)
  Sender: FDA-Public Use
  Company Number: GBS050316835

PATIENT
  Age: 68 Year
  Sex: Male

DRUGS (5)
  1. ZYPREXA [Suspect]
     Indication: ANXIETY
     Dosage: 50 MG
     Dates: start: 20040701
  2. DEPAKOTE [Concomitant]
  3. NOVONORM (REPAGLINIDE) [Concomitant]
  4. ZOLPIDEM TARTRATE [Concomitant]
  5. RAMIPRIL [Concomitant]

REACTIONS (7)
  - BRUXISM [None]
  - CONDITION AGGRAVATED [None]
  - INSOMNIA [None]
  - MEDICAL DEVICE COMPLICATION [None]
  - MUSCLE SPASMS [None]
  - PAIN [None]
  - PRESCRIBED OVERDOSE [None]
